FAERS Safety Report 8184805-X (Version None)
Quarter: 2012Q1

REPORT INFORMATION
  Report Type: 
  Country: None (occurrence: None)
  Receive Date: 20120305
  Receipt Date: 20120229
  Transmission Date: 20120608
  Serious: Yes (Hospitalization)
  Sender: FDA-Public Use
  Company Number: US-BAYER-2011-099020

PATIENT
  Age: 18 Year
  Sex: Female
  Weight: 117.91 kg

DRUGS (12)
  1. TORADOL [Concomitant]
     Dosage: UNK
     Dates: start: 20081001
  2. GI COCKTAIL [Concomitant]
     Dosage: UNK
     Dates: start: 20081001
  3. ZOLOFT [Concomitant]
     Dosage: 50 MG, UNK
  4. YAZ [Suspect]
     Indication: PREMENSTRUAL SYNDROME
     Dosage: UNK
     Dates: start: 20070801, end: 20090101
  5. YAZ [Suspect]
  6. PRILOSEC [Concomitant]
  7. PROTONIX [Concomitant]
     Dosage: 40 MG, UNK
     Dates: start: 20081001
  8. CEFTIN [Concomitant]
     Dosage: 500 MG, UNK
     Dates: start: 20081001
  9. VITAMIN D [Concomitant]
     Dosage: 1.25 MG, UNK
  10. REGLAN [Concomitant]
     Dosage: UNK
     Dates: start: 20081001
  11. SYNTHROID [Concomitant]
     Indication: HYPOTHYROIDISM
     Dosage: 50 MCG/24HR, UNK
  12. PERCOCET [Concomitant]
     Dosage: UNK
     Dates: start: 20081001

REACTIONS (5)
  - GALLBLADDER NON-FUNCTIONING [None]
  - INJURY [None]
  - PAIN [None]
  - CHOLECYSTITIS CHRONIC [None]
  - CHOLELITHIASIS [None]
